FAERS Safety Report 13066200 (Version 1)
Quarter: 2016Q4

REPORT INFORMATION
  Report Type: Spontaneous
  Country: FR (occurrence: FR)
  Receive Date: 20161227
  Receipt Date: 20161227
  Transmission Date: 20170207
  Serious: Yes (Hospitalization)
  Sender: FDA-Public Use
  Company Number: FR-PFIZER INC-2016597999

PATIENT
  Age: 82 Year
  Sex: Female

DRUGS (16)
  1. CORENITEC [Suspect]
     Active Substance: ENALAPRIL\HYDROCHLOROTHIAZIDE
     Route: 048
  2. COZAAR [Concomitant]
     Active Substance: LOSARTAN POTASSIUM
     Dosage: AT MORNING
     Route: 048
  3. TRAVATAN [Concomitant]
     Active Substance: TRAVOPROST
     Dosage: 40MCG/ML 1DF AT NIGHT
     Route: 048
  4. RISPERDAL [Concomitant]
     Active Substance: RISPERIDONE
     Dosage: 0.5MG IF NEEDED
     Route: 048
  5. KEPPRA [Suspect]
     Active Substance: LEVETIRACETAM
     Dosage: 250 MG, UNK
     Route: 048
  6. LERCAN [Suspect]
     Active Substance: LERCANIDIPINE
     Dosage: 20 MG, UNK
     Route: 048
  7. LEVOTHYROX [Concomitant]
     Active Substance: LEVOTHYROXINE
     Dosage: AT MORNING
     Route: 048
  8. ATENOLOL. [Suspect]
     Active Substance: ATENOLOL
     Route: 048
  9. KEPPRA [Suspect]
     Active Substance: LEVETIRACETAM
     Dosage: 500 MG, UNK
     Route: 048
  10. CORDARONE [Concomitant]
     Active Substance: AMIODARONE HYDROCHLORIDE
     Dosage: AT MORNING
     Route: 048
  11. KARDEGIC [Concomitant]
     Active Substance: ASPIRIN LYSINE
     Dosage: AT NOON
     Route: 048
  12. FORLAX [Concomitant]
     Active Substance: POLYETHYLENE GLYCOL 4000
     Dosage: MORNING AND NOON
     Route: 048
  13. SEROPLEX [Concomitant]
     Active Substance: ESCITALOPRAM OXALATE
     Dosage: MORNING AND NIGHT
     Route: 048
  14. SERC [Concomitant]
     Active Substance: BETAHISTINE HYDROCHLORIDE
     Route: 048
  15. LASIX [Concomitant]
     Active Substance: FUROSEMIDE
     Dosage: AT MORNING
     Route: 048
  16. SERESTA [Concomitant]
     Active Substance: OXAZEPAM
     Dosage: AT NIGHT
     Route: 048

REACTIONS (4)
  - Bradycardia [Recovered/Resolved]
  - Accidental poisoning [Unknown]
  - Orthostatic hypotension [Recovered/Resolved]
  - Electrocardiogram QT prolonged [Recovered/Resolved]

NARRATIVE: CASE EVENT DATE: 20141204
